FAERS Safety Report 8334349-7 (Version None)
Quarter: 2012Q2

REPORT INFORMATION
  Report Type: 
  Country: None (occurrence: None)
  Receive Date: 20120503
  Receipt Date: 20120427
  Transmission Date: 20120825
  Serious: Yes (Other)
  Sender: FDA-Public Use
  Company Number: PHHY2012JP019728

PATIENT
  Age: 31 Year
  Sex: Female

DRUGS (3)
  1. ISONIAZID [Suspect]
     Indication: DISSEMINATED TUBERCULOSIS
  2. ETHAMBUTOL HYDROCHLORIDE [Suspect]
     Indication: DISSEMINATED TUBERCULOSIS
  3. RIFAMPICIN [Suspect]
     Indication: DISSEMINATED TUBERCULOSIS

REACTIONS (2)
  - ABORTION SPONTANEOUS [None]
  - MATERNAL EXPOSURE DURING PREGNANCY [None]
